FAERS Safety Report 6702623-3 (Version None)
Quarter: 2010Q2

REPORT INFORMATION
  Report Type: 
  Country: None (occurrence: None)
  Receive Date: 20100429
  Receipt Date: 20100427
  Transmission Date: 20101027
  Serious: Yes (Other)
  Sender: FDA-Public Use
  Company Number: CHPA2010US07440

PATIENT
  Sex: Female

DRUGS (1)
  1. EXCEDRIN MIGRAINE (NCH) [Suspect]
     Indication: HEADACHE
     Dosage: UNK, UNK
     Route: 048

REACTIONS (1)
  - DRUG DEPENDENCE [None]
